FAERS Safety Report 9486279 (Version 1)
Quarter: 2013Q3

REPORT INFORMATION
  Report Type: Spontaneous
  Country: JP (occurrence: JP)
  Receive Date: 20130829
  Receipt Date: 20130829
  Transmission Date: 20140515
  Serious: Yes (Death)
  Sender: FDA-Public Use
  Company Number: JP-ASTELLAS-2013JP008688

PATIENT
  Age: 78 Year
  Sex: Female
  Weight: 33 kg

DRUGS (18)
  1. FUNGUARD [Suspect]
     Indication: SYSTEMIC CANDIDA
     Dosage: UNK
     Route: 065
     Dates: start: 20110310
  2. O2                                 /00150301/ [Concomitant]
     Dosage: UNK
     Route: 065
  3. METHYLPREDNISOLONE [Concomitant]
     Indication: ACUTE RESPIRATORY DISTRESS SYNDROME
     Dosage: 1000 MG, UNKNOWN/D
     Route: 065
     Dates: start: 20110223, end: 201102
  4. METHYLPREDNISOLONE [Concomitant]
     Dosage: 500 MG, UNKNOWN/D
     Route: 065
     Dates: start: 201103, end: 201103
  5. METHYLPREDNISOLONE [Concomitant]
     Dosage: 1000 MG, UNKNOWN/D
     Route: 065
     Dates: start: 201103
  6. ISONIAZID [Concomitant]
     Indication: MYCOBACTERIUM TEST POSITIVE
     Dosage: UNK
     Route: 065
     Dates: start: 20110224
  7. ISONIAZID [Concomitant]
     Indication: MYCOBACTERIUM TUBERCULOSIS COMPLEX TEST POSITIVE
  8. RIFAMPICIN [Concomitant]
     Indication: MYCOBACTERIUM TEST POSITIVE
     Dosage: UNK
     Route: 065
     Dates: start: 20110224
  9. RIFAMPICIN [Concomitant]
     Indication: MYCOBACTERIUM TUBERCULOSIS COMPLEX TEST POSITIVE
  10. ETHAMBUTOL [Concomitant]
     Indication: MYCOBACTERIUM TEST POSITIVE
     Dosage: UNK
     Route: 065
     Dates: start: 20110224
  11. ETHAMBUTOL [Concomitant]
     Indication: MYCOBACTERIUM TUBERCULOSIS COMPLEX TEST POSITIVE
  12. PYRAZINAMIDE [Concomitant]
     Indication: MYCOBACTERIUM TEST POSITIVE
     Dosage: UNK
     Route: 065
     Dates: start: 20110224
  13. PYRAZINAMIDE [Concomitant]
     Indication: MYCOBACTERIUM TUBERCULOSIS COMPLEX TEST POSITIVE
  14. GENTAMICIN [Concomitant]
     Dosage: UNK
     Route: 065
     Dates: start: 201103, end: 201103
  15. AMPICILLIN AND SULBACTAM [Concomitant]
     Dosage: UNK
     Route: 065
     Dates: start: 201102, end: 201103
  16. CEFTRIAXONE [Concomitant]
     Dosage: UNK
     Route: 065
     Dates: start: 201103, end: 201103
  17. VANCOMYCIN [Concomitant]
     Dosage: UNK
     Route: 065
     Dates: start: 201103
  18. SIVELESTAT [Concomitant]
     Dosage: UNK
     Route: 065
     Dates: start: 201102, end: 201103

REACTIONS (2)
  - Drug ineffective [Unknown]
  - Systemic candida [Fatal]
